FAERS Safety Report 21578193 (Version 1)
Quarter: 2022Q4

REPORT INFORMATION
  Report Type: Report from Study
  Country: EC (occurrence: EC)
  Receive Date: 20221110
  Receipt Date: 20221110
  Transmission Date: 20230113
  Serious: Yes (Death, Hospitalization)
  Sender: FDA-Public Use
  Company Number: EC-BAYER-2022A148479

PATIENT
  Age: 68 Year
  Sex: Female

DRUGS (4)
  1. NEXAVAR [Suspect]
     Active Substance: SORAFENIB
     Indication: Thyroid cancer
     Dosage: 600 MG PER DAY
     Route: 048
     Dates: start: 20220502, end: 20220815
  2. SORAFENIB TOSYLATE [Concomitant]
     Active Substance: SORAFENIB TOSYLATE
     Indication: Thyroid cancer
     Dosage: 600 MG DAILY
     Dates: start: 20220816, end: 20221014
  3. SODIUM CHLORIDE [Concomitant]
     Active Substance: SODIUM CHLORIDE
     Dosage: 1000 ML DAILY
     Dates: start: 20221010, end: 20221014
  4. MORPHINE [Concomitant]
     Active Substance: MORPHINE
     Indication: Pain
     Dosage: 10 MG EVERY 12 HOURS
     Dates: start: 20221010, end: 20221014

REACTIONS (3)
  - Thyroid cancer [Fatal]
  - Dyspnoea [Fatal]
  - Asthenia [Fatal]

NARRATIVE: CASE EVENT DATE: 20221010
